FAERS Safety Report 8322515-6 (Version None)
Quarter: 2012Q2

REPORT INFORMATION
  Report Type: 
  Country: None (occurrence: None)
  Receive Date: 20120430
  Receipt Date: 20100203
  Transmission Date: 20120825
  Serious: No
  Sender: FDA-Public Use
  Company Number: US-TEVA-2010000686

PATIENT
  Sex: Male
  Weight: 86.26 kg

DRUGS (10)
  1. DOXYCYCLINE [Concomitant]
  2. LORAZEPAM [Concomitant]
     Dates: start: 20091201
  3. LIPITOR [Concomitant]
  4. PRESSURE VISION [Concomitant]
  5. SYNTHROID [Concomitant]
  6. TEMAZEPAM [Concomitant]
     Indication: SLEEP DISORDER
     Dates: start: 20040101
  7. CELEBREX [Concomitant]
  8. NEXIUM [Concomitant]
     Dates: start: 20091201
  9. NUVIGIL [Suspect]
     Indication: SLEEP APNOEA SYNDROME
     Dosage: 150 MILLIGRAM;
     Route: 048
  10. NUVIGIL [Suspect]
     Route: 048

REACTIONS (2)
  - THERAPEUTIC RESPONSE UNEXPECTED [None]
  - INSOMNIA [None]
